FAERS Safety Report 6961988 (Version 3)
Quarter: 2016Q1

REPORT INFORMATION
  Report Type: Spontaneous
  Country: DE (occurrence: DE)
  Receive Date: 20090407
  Receipt Date: 20160115
  Transmission Date: 20160526
  Serious: Yes (Other)
  Sender: FDA-Public Use
  Company Number: DE-BRISTOL-MYERS SQUIBB COMPANY-14571020

PATIENT
  Sex: Male
  Weight: 2.79 kg

DRUGS (1)
  1. ABILIFY [Suspect]
     Active Substance: ARIPIPRAZOLE
     Indication: PRODUCT USED FOR UNKNOWN INDICATION
     Dosage: 10 MG, QD
     Route: 064

REACTIONS (3)
  - Pyelonephritis [Unknown]
  - Foetal exposure during pregnancy [Recovered/Resolved]
  - Nasal septum deviation [Unknown]
